FAERS Safety Report 4679716-8 (Version None)
Quarter: 2005Q2

REPORT INFORMATION
  Report Type: 
  Country: None (occurrence: None)
  Receive Date: 20050602
  Receipt Date: 20050523
  Transmission Date: 20051028
  Serious: Yes (Other)
  Sender: FDA-Public Use
  Company Number: IN-ABBOTT-05P-078-0301170-00

PATIENT
  Age: 4 Month
  Sex: Male

DRUGS (6)
  1. ULTANE [Suspect]
     Indication: INDUCTION OF ANAESTHESIA
     Route: 055
  2. ULTANE [Suspect]
     Indication: MAINTENANCE OF ANAESTHESIA
     Dosage: 2.5 TO 3%
     Route: 055
  3. ULTANE [Suspect]
     Route: 055
  4. ULTANE [Suspect]
     Dosage: 2.5 TO 3%
     Route: 055
  5. OXYGEN [Concomitant]
     Indication: INDUCTION OF ANAESTHESIA
     Route: 055
  6. PETHIDINE [Concomitant]
     Indication: ANALGESIC EFFECT
     Route: 050

REACTIONS (1)
  - ATELECTASIS [None]
